FAERS Safety Report 11358914 (Version 1)
Quarter: 2015Q3

REPORT INFORMATION
  Report Type: Spontaneous
  Country: US (occurrence: None)
  Receive Date: 20150807
  Receipt Date: 20150807
  Transmission Date: 20151125
  Serious: No
  Sender: FDA-Public Use
  Company Number: None

PATIENT
  Age: 53 Year
  Sex: Female

DRUGS (1)
  1. XELODA [Suspect]
     Active Substance: CAPECITABINE

REACTIONS (3)
  - Fatigue [None]
  - Decreased appetite [None]
  - Nausea [None]

NARRATIVE: CASE EVENT DATE: 20150805
